FAERS Safety Report 17324294 (Version 1)
Quarter: 2020Q1

REPORT INFORMATION
  Report Type: Spontaneous
  Country: IT (occurrence: IT)
  Receive Date: 20200127
  Receipt Date: 20200127
  Transmission Date: 20200409
  Serious: Yes (Hospitalization, Other)
  Sender: FDA-Public Use
  Company Number: IT-ACCORD-170522

PATIENT
  Age: 72 Year
  Sex: Female
  Weight: 45 kg

DRUGS (5)
  1. CLARITHROMYCIN/CLARITHROMYCIN LACTOBIONATE [Concomitant]
     Active Substance: CLARITHROMYCIN LACTOBIONATE
     Indication: MYCOBACTERIUM ABSCESSUS INFECTION
     Dates: start: 20181127, end: 20190301
  2. AMIKACIN/AMIKACIN SULFATE [Concomitant]
     Active Substance: AMIKACIN SULFATE
     Indication: MYCOBACTERIUM ABSCESSUS INFECTION
     Dates: start: 20181026
  3. IMIPENEM [Concomitant]
     Active Substance: IMIPENEM
     Indication: MYCOBACTERIUM ABSCESSUS INFECTION
     Dates: start: 20181110
  4. TIGECYCLINE. [Suspect]
     Active Substance: TIGECYCLINE
     Indication: MYCOBACTERIUM ABSCESSUS INFECTION
     Dates: start: 20181212
  5. TIGECYCLINE. [Suspect]
     Active Substance: TIGECYCLINE
     Indication: MYCOBACTERIUM ABSCESSUS INFECTION
     Dates: start: 20181026

REACTIONS (2)
  - Drug intolerance [Unknown]
  - Hepatitis [Unknown]

NARRATIVE: CASE EVENT DATE: 201811
